FAERS Safety Report 7557890-3 (Version None)
Quarter: 2011Q2

REPORT INFORMATION
  Report Type: 
  Country: None (occurrence: None)
  Receive Date: 20110620
  Receipt Date: 20110602
  Transmission Date: 20111010
  Serious: Yes (Death, Hospitalization)
  Sender: FDA-Public Use
  Company Number: A0870216A

PATIENT
  Age: 43 Year
  Sex: Male
  Weight: 123.6 kg

DRUGS (6)
  1. AVANDIA [Suspect]
     Dosage: 8MG PER DAY
     Route: 048
     Dates: end: 20080901
  2. GLUCOPHAGE [Concomitant]
  3. ALTACE [Concomitant]
  4. GLUCOTROL [Concomitant]
  5. ATENOLOL [Concomitant]
  6. ZETIA [Concomitant]

REACTIONS (3)
  - MYOCARDIAL INFARCTION [None]
  - DEATH [None]
  - CARDIAC FAILURE CONGESTIVE [None]
